FAERS Safety Report 8921861 (Version 1)
Quarter: 2012Q4

REPORT INFORMATION
  Report Type: 
  Country: FR (occurrence: FR)
  Receive Date: 20121121
  Receipt Date: 20121121
  Transmission Date: 20130627
  Serious: Yes (Hospitalization)
  Sender: FDA-Public Use
  Company Number: FR-ASTRAZENECA-2012SE86756

PATIENT
  Age: 8911 Day
  Sex: Female

DRUGS (3)
  1. ENTOCORT [Suspect]
     Indication: CROHN^S DISEASE
     Route: 048
     Dates: end: 20120821
  2. ENTOCORT [Suspect]
     Indication: CROHN^S DISEASE
     Route: 048
     Dates: start: 20120822, end: 20120827
  3. AZATHIOPRINE MYLAN [Suspect]
     Indication: CROHN^S DISEASE
     Route: 048
     Dates: start: 20120822, end: 20120827

REACTIONS (4)
  - Pancreatitis acute [Recovered/Resolved]
  - Abdominal pain [Recovered/Resolved]
  - Vomiting [Recovered/Resolved]
  - Nausea [Recovered/Resolved]
